FAERS Safety Report 8462718-3 (Version None)
Quarter: 2012Q2

REPORT INFORMATION
  Report Type: 
  Country: None (occurrence: None)
  Receive Date: 20120619
  Receipt Date: 20120619
  Transmission Date: 20120825
  Serious: Yes (Other)
  Sender: FDA-Public Use
  Company Number: None

PATIENT
  Age: 60 Year
  Sex: Male
  Weight: 110.2241 kg

DRUGS (1)
  1. DEXTROSE 10% [Suspect]
     Indication: HYPOGLYCAEMIA
     Dosage: 40 ML/HR  ROUTINE	 IV DRIP
     Route: 041
     Dates: start: 20120328, end: 20120405

REACTIONS (2)
  - HYPONATRAEMIA [None]
  - NO THERAPEUTIC RESPONSE [None]
